FAERS Safety Report 7756430-3 (Version None)
Quarter: 2011Q3

REPORT INFORMATION
  Report Type: 
  Country: None (occurrence: None)
  Receive Date: 20110916
  Receipt Date: 20110902
  Transmission Date: 20111222
  Serious: No
  Sender: FDA-Public Use
  Company Number: US-B.I. PHARMACEUTICALS,INC./RIDGEFIELD-2011-BP-21401BP

PATIENT
  Age: 78 Year
  Sex: Female

DRUGS (8)
  1. TYLENOL-500 [Concomitant]
     Indication: PAIN
  2. CALCIUM CARBONATE [Concomitant]
     Indication: MINERAL SUPPLEMENTATION
     Route: 048
  3. KLONOPIN [Concomitant]
     Indication: CONVULSION
     Route: 048
  4. LEXAPRO [Concomitant]
     Indication: DEPRESSION
     Route: 048
  5. TYLENOL-500 [Concomitant]
     Indication: HEADACHE
     Route: 048
  6. DEPAKOTE [Concomitant]
     Indication: CONVULSION
     Route: 048
  7. VIT D [Concomitant]
     Indication: VITAMIN SUPPLEMENTATION
     Route: 048
  8. SPIRIVA [Suspect]
     Indication: CHRONIC OBSTRUCTIVE PULMONARY DISEASE
     Dosage: 18 MCG
     Route: 055
     Dates: start: 20110301

REACTIONS (4)
  - MUSCULOSKELETAL PAIN [None]
  - GASTROOESOPHAGEAL REFLUX DISEASE [None]
  - DRY MOUTH [None]
  - ARTHRALGIA [None]
